FAERS Safety Report 15659779 (Version 2)
Quarter: 2019Q1

REPORT INFORMATION
  Report Type: Spontaneous
  Country: JP (occurrence: JP)
  Receive Date: 20181127
  Receipt Date: 20190212
  Transmission Date: 20190417
  Serious: Yes (Hospitalization)
  Sender: FDA-Public Use
  Company Number: JP-ROCHE-2220882

PATIENT
  Age: 69 Year
  Sex: Female
  Weight: 70 kg

DRUGS (7)
  1. DEXART [Concomitant]
     Active Substance: DEXAMETHASONE SODIUM PHOSPHATE
     Route: 041
     Dates: start: 20181119, end: 20181119
  2. BICARBON [Concomitant]
     Active Substance: SODIUM BICARBONATE
     Indication: HEPATIC FUNCTION ABNORMAL
     Route: 042
     Dates: start: 20181119, end: 20181119
  3. BICARBON [Concomitant]
     Active Substance: SODIUM BICARBONATE
     Dosage: 1000 - 1500 UNIT (ML)
     Route: 042
     Dates: start: 20181120, end: 20181124
  4. GAZYVA [Suspect]
     Active Substance: OBINUTUZUMAB
     Indication: B-CELL LYMPHOMA
     Route: 041
     Dates: start: 20181119, end: 20181119
  5. FEBURIC [Concomitant]
     Active Substance: FEBUXOSTAT
     Indication: PROPHYLAXIS
     Route: 048
  6. BENDAMUSTINE HYDROCHLORIDE. [Concomitant]
     Active Substance: BENDAMUSTINE HYDROCHLORIDE
     Dosage: DOSAGE IS UNCERTAIN.
     Route: 065
     Dates: start: 20181119
  7. NEORESTAR [Concomitant]
     Active Substance: CHLORPHENIRAMINE MALEATE
     Route: 041
     Dates: start: 20181119, end: 20181119

REACTIONS (1)
  - Hepatic function abnormal [Recovered/Resolved]

NARRATIVE: CASE EVENT DATE: 20181120
